FAERS Safety Report 4590704-2 (Version None)
Quarter: 2005Q1

REPORT INFORMATION
  Report Type: 
  Country: None (occurrence: None)
  Receive Date: 20050224
  Receipt Date: 20050105
  Transmission Date: 20050727
  Serious: No
  Sender: FDA-Public Use
  Company Number: CA-MERCK-0501CAN00022

PATIENT
  Age: 44 Year
  Sex: Male

DRUGS (4)
  1. INVANZ [Suspect]
     Indication: APPENDICITIS
     Route: 042
     Dates: start: 20050102, end: 20050104
  2. MEPERIDINE HYDROCHLORIDE [Concomitant]
     Route: 065
  3. DIMENHYDRINATE [Concomitant]
     Route: 042
  4. NYSTATIN [Concomitant]
     Route: 065
     Dates: start: 20050104

REACTIONS (5)
  - LOCAL SWELLING [None]
  - LOCALISED OEDEMA [None]
  - MOUTH ULCERATION [None]
  - NASOPHARYNGITIS [None]
  - PHARYNGEAL ULCERATION [None]
